FAERS Safety Report 15810899 (Version 1)
Quarter: 2019Q1

REPORT INFORMATION
  Report Type: Spontaneous
  Country: GB (occurrence: GB)
  Receive Date: 20190111
  Receipt Date: 20190111
  Transmission Date: 20190417
  Serious: Yes (Other)
  Sender: FDA-Public Use
  Company Number: GB-TEVA-2019-GB-997072

PATIENT
  Age: 2 Year
  Sex: Female
  Weight: 12 kg

DRUGS (5)
  1. PHENOXYMETHYLPENICILLIN [Suspect]
     Active Substance: PENICILLIN V
     Dosage: 20 ML DAILY; 125MG/5ML
     Dates: start: 20181211
  2. ERYTHROMYCIN ETHYLSUCCINATE. [Concomitant]
     Active Substance: ERYTHROMYCIN ETHYLSUCCINATE
     Dosage: 20 ML DAILY;
     Dates: start: 20181212
  3. CETRABEN EMOLLIENT BATH ADDITIVE [Concomitant]
     Dosage: ADD HALF A CAPFUL TO BATH WATER
     Dates: start: 20180419
  4. HYDROCORTISONE. [Concomitant]
     Active Substance: HYDROCORTISONE
     Dosage: 2 DOSAGE FORMS DAILY; APPLY
     Route: 065
     Dates: start: 20180926, end: 20180927
  5. LAXIDO [Concomitant]
     Active Substance: POLYETHYLENE GLYCOL 3350\POTASSIUM CHLORIDE\SODIUM BICARBONATE\SODIUM CHLORIDE
     Dosage: USE 2 DAILY UP TO A MAX OF 4 PER DAY TO PROVIDE REGULAR SOFT STOOL.
     Dates: start: 20181018, end: 20181117

REACTIONS (3)
  - Rash [Recovering/Resolving]
  - Malaise [Unknown]
  - Vomiting [Recovered/Resolved]

NARRATIVE: CASE EVENT DATE: 20181211
